FAERS Safety Report 5557808-9 (Version None)
Quarter: 2007Q4

REPORT INFORMATION
  Report Type: 
  Country: None (occurrence: None)
  Receive Date: 20071130
  Receipt Date: 20070828
  Transmission Date: 20080405
  Serious: No
  Sender: FDA-Public Use
  Company Number: US200708006367

PATIENT
  Age: 30 Year
  Sex: Male

DRUGS (3)
  1. BYETTA [Suspect]
     Indication: TYPE 2 DIABETES MELLITUS
     Dosage: 5 UG, 2/D, SUBCUTANEOUS;  10 UG, 2/D, SUBCUTANEOUS
     Route: 058
     Dates: start: 20070101, end: 20070101
  2. BYETTA [Suspect]
     Indication: TYPE 2 DIABETES MELLITUS
     Dosage: 5 UG, 2/D, SUBCUTANEOUS;  10 UG, 2/D, SUBCUTANEOUS
     Route: 058
     Dates: start: 20070101
  3. AVANDAMET (METFORMAN HYDROCHLORIDE, ROSIGLITAZONE MALEATE) [Concomitant]

REACTIONS (5)
  - ASTHENIA [None]
  - CHILLS [None]
  - EAR INFECTION [None]
  - FATIGUE [None]
  - PYREXIA [None]
